FAERS Safety Report 21036725 (Version 1)
Quarter: 2022Q3

REPORT INFORMATION
  Report Type: Spontaneous
  Country: US (occurrence: US)
  Receive Date: 20220702
  Receipt Date: 20220702
  Transmission Date: 20221027
  Serious: No
  Sender: FDA-Public Use
  Company Number: US-TEVA-2022-US-2044944

PATIENT
  Age: 80 Year
  Sex: Female

DRUGS (1)
  1. KETOCONAZOLE [Suspect]
     Active Substance: KETOCONAZOLE
     Indication: Skin infection
     Route: 065
     Dates: start: 20220527, end: 2022

REACTIONS (1)
  - Application site exfoliation [Unknown]

NARRATIVE: CASE EVENT DATE: 20220527
